FAERS Safety Report 23307731 (Version 1)
Quarter: 2023Q4

REPORT INFORMATION
  Report Type: Spontaneous
  Country: JP (occurrence: JP)
  Receive Date: 20231218
  Receipt Date: 20231218
  Transmission Date: 20240109
  Serious: Yes (Other)
  Sender: FDA-Public Use
  Company Number: JP-PFIZER INC-PV202300201550

PATIENT
  Age: 3 Year
  Sex: Female

DRUGS (3)
  1. HYDROCORTISONE SODIUM SUCCINATE [Suspect]
     Active Substance: HYDROCORTISONE SODIUM SUCCINATE
     Indication: Acute lymphocytic leukaemia
     Dosage: UNK UNK, WEEKLY
     Route: 037
  2. METHOTREXATE SODIUM [Suspect]
     Active Substance: METHOTREXATE SODIUM
     Indication: Acute lymphocytic leukaemia
     Dosage: UNK UNK, WEEKLY
     Route: 037
  3. CYTARABINE [Suspect]
     Active Substance: CYTARABINE
     Indication: Acute lymphocytic leukaemia
     Dosage: UNK UNK, WEEKLY
     Route: 037

REACTIONS (6)
  - Neutropenia [Unknown]
  - Thrombocytopenia [Unknown]
  - Blood fibrinogen decreased [Unknown]
  - Antithrombin III decreased [Unknown]
  - Off label use [Unknown]
  - Off label use [Unknown]
